FAERS Safety Report 9408343 (Version 1)
Quarter: 2013Q3

REPORT INFORMATION
  Report Type: Spontaneous
  Country: US (occurrence: US)
  Receive Date: 20130718
  Receipt Date: 20130718
  Transmission Date: 20140515
  Serious: No
  Sender: FDA-Public Use
  Company Number: US-009507513-1307USA009252

PATIENT
  Sex: 0
  Weight: 76.64 kg

DRUGS (2)
  1. NEXPLANON [Suspect]
     Dosage: 1 DF, UNK
     Route: 059
     Dates: start: 20130717, end: 20130717
  2. NEXPLANON [Suspect]
     Dosage: 68MG/ 1 ROD EVERY 3 YEARSUNK
     Route: 059
     Dates: start: 20130716

REACTIONS (3)
  - Complication of device insertion [Recovered/Resolved]
  - Product quality issue [Unknown]
  - No adverse event [Unknown]
